FAERS Safety Report 9353532 (Version 1)
Quarter: 2013Q2

REPORT INFORMATION
  Report Type: Spontaneous
  Country: US (occurrence: US)
  Receive Date: 20130618
  Receipt Date: 20130618
  Transmission Date: 20140414
  Serious: Yes (Other)
  Sender: FDA-Public Use
  Company Number: US-JNJFOC-20130603328

PATIENT
  Sex: Female
  Weight: 55.79 kg

DRUGS (1)
  1. ELMIRON [Suspect]
     Indication: CYSTITIS INTERSTITIAL
     Route: 048

REACTIONS (3)
  - Liver function test abnormal [Unknown]
  - Pancreatic enzymes increased [Unknown]
  - Inappropriate schedule of drug administration [Unknown]
